FAERS Safety Report 6578766-4 (Version None)
Quarter: 2010Q1

REPORT INFORMATION
  Report Type: 
  Country: None (occurrence: None)
  Receive Date: 20100202
  Receipt Date: 20100122
  Transmission Date: 20100710
  Serious: Yes (Death, Hospitalization)
  Sender: FDA-Public Use
  Company Number: 2010AP000146

PATIENT
  Age: 30 Year
  Sex: Female

DRUGS (2)
  1. PAROXETINE HCL [Suspect]
     Indication: POSTPARTUM DEPRESSION
  2. ETHANOL (ETHANOL) [Suspect]

REACTIONS (13)
  - AFFECT LABILITY [None]
  - ALCOHOL USE [None]
  - COMPLETED SUICIDE [None]
  - DISINHIBITION [None]
  - HYPOMANIA [None]
  - INCREASED APPETITE [None]
  - IRRITABILITY [None]
  - LIBIDO INCREASED [None]
  - MENTAL IMPAIRMENT [None]
  - OVERDOSE [None]
  - POOR QUALITY SLEEP [None]
  - SELF-INJURIOUS IDEATION [None]
  - SLEEP DISORDER [None]
